FAERS Safety Report 9430120 (Version 1)
Quarter: 2013Q3

REPORT INFORMATION
  Report Type: Spontaneous
  Country: FR (occurrence: FR)
  Receive Date: 20130730
  Receipt Date: 20130730
  Transmission Date: 20140515
  Serious: Yes (Hospitalization)
  Sender: FDA-Public Use
  Company Number: FR-TEVA-421700ISR

PATIENT
  Age: 45 Year
  Sex: Female
  Weight: 57.5 kg

DRUGS (5)
  1. COPAXONE [Suspect]
     Indication: MULTIPLE SCLEROSIS
     Dosage: 20 MILLIGRAM DAILY;
     Route: 058
     Dates: start: 201107, end: 201204
  2. CORTANCYL 20 MG [Concomitant]
     Dosage: 20 MILLIGRAM DAILY;
     Route: 048
     Dates: start: 201202, end: 2012
  3. REQUIP [Concomitant]
     Dosage: 6 MILLIGRAM DAILY; AT 10 P.M
  4. RIVOTRIL 2 MG [Concomitant]
     Dosage: .5 MILLIGRAM DAILY; BEFORE SLEEPING
  5. ACTONEL 35 MG [Concomitant]
     Dosage: 35 MILLIGRAM DAILY;

REACTIONS (5)
  - Weight increased [Recovered/Resolved]
  - Rash [Recovered/Resolved]
  - Oedema [Recovered/Resolved]
  - Back pain [Recovered/Resolved]
  - Endocrine disorder [Unknown]
